FAERS Safety Report 4821844-8 (Version None)
Quarter: 2005Q4

REPORT INFORMATION
  Report Type: 
  Country: None (occurrence: None)
  Receive Date: 20051107
  Receipt Date: 20051028
  Transmission Date: 20060501
  Serious: Yes (Other)
  Sender: FDA-Public Use
  Company Number: 2005UW16324

PATIENT
  Age: 16 Year
  Sex: Female
  Weight: 53.9 kg

DRUGS (1)
  1. TAMOXIFEN [Suspect]
     Dosage: BID FOR ONE WEEK
     Route: 048
     Dates: start: 20010101

REACTIONS (8)
  - CONTUSION [None]
  - LEUKAEMIA [None]
  - MEDICATION ERROR [None]
  - MENSTRUAL DISORDER [None]
  - SUPRAVENTRICULAR TACHYCARDIA [None]
  - THROMBOCYTOPENIA [None]
  - TREMOR [None]
  - WRONG DRUG ADMINISTERED [None]
